FAERS Safety Report 23108294 (Version 1)
Quarter: 2023Q4

REPORT INFORMATION
  Report Type: Spontaneous
  Country: US (occurrence: None)
  Receive Date: 20231025
  Receipt Date: 20231025
  Transmission Date: 20240110
  Serious: Yes (Other)
  Sender: FDA-Public Use
  Company Number: None

PATIENT

DRUGS (3)
  1. FAMOTIDINE [Suspect]
     Active Substance: FAMOTIDINE
     Indication: Gastrooesophageal reflux disease
     Route: 048
  2. ZAFIRLUKAST [Suspect]
     Active Substance: ZAFIRLUKAST
     Indication: Asthma
     Route: 048
  3. ZAFIRLUKAST [Suspect]
     Active Substance: ZAFIRLUKAST
     Indication: Hypersensitivity

REACTIONS (1)
  - Product appearance confusion [None]
